FAERS Safety Report 14066202 (Version 2)
Quarter: 2017Q4

REPORT INFORMATION
  Report Type: Report from Study
  Country: US (occurrence: US)
  Receive Date: 20171010
  Receipt Date: 20171027
  Transmission Date: 20180321
  Serious: No
  Sender: FDA-Public Use
  Company Number: US-AMGEN-USASL2017151468

PATIENT
  Age: 58 Year
  Sex: Male
  Weight: 135.15 kg

DRUGS (1)
  1. ENBREL [Suspect]
     Active Substance: ETANERCEPT
     Indication: PRODUCT USED FOR UNKNOWN INDICATION
     Dosage: 50 MG, UNK
     Route: 065

REACTIONS (8)
  - Headache [Unknown]
  - Dizziness [Recovered/Resolved]
  - Hypoacusis [Recovering/Resolving]
  - Spinal pain [Unknown]
  - Malaise [Recovering/Resolving]
  - Back pain [Unknown]
  - Nausea [Recovered/Resolved]
  - Vomiting [Unknown]

NARRATIVE: CASE EVENT DATE: 20170923
